FAERS Safety Report 10231790 (Version 1)
Quarter: 2014Q2

REPORT INFORMATION
  Report Type: Spontaneous
  Country: IT (occurrence: IT)
  Receive Date: 20140612
  Receipt Date: 20140612
  Transmission Date: 20141212
  Serious: Yes (Other)
  Sender: FDA-Public Use
  Company Number: PHHY2014IT069285

PATIENT
  Age: 46 Year
  Sex: Female

DRUGS (1)
  1. AMOXICILLIN SANDOZ [Suspect]
     Indication: DENTAL OPERATION
     Dosage: 1 DF, ONCE/SINGLE
     Route: 048
     Dates: start: 20140417, end: 20140417

REACTIONS (5)
  - Dysphonia [Recovered/Resolved]
  - Throat tightness [Recovered/Resolved]
  - Oedema [Recovered/Resolved]
  - Pruritus [Recovered/Resolved]
  - Urticaria [Recovered/Resolved]
